FAERS Safety Report 10164922 (Version 1)
Quarter: 2014Q2

REPORT INFORMATION
  Report Type: Spontaneous
  Country: US (occurrence: US)
  Receive Date: 20140510
  Receipt Date: 20140510
  Transmission Date: 20141212
  Serious: No
  Sender: FDA-Public Use
  Company Number: US-BRISTOL-MYERS SQUIBB COMPANY-20208187

PATIENT
  Age: 55 Year
  Sex: Male
  Weight: 97.05 kg

DRUGS (2)
  1. BYDUREON [Suspect]
     Indication: TYPE 2 DIABETES MELLITUS
     Dosage: LAST DOSE ON 03FEB2014
     Route: 058
  2. KOMBIGLYZE XR [Concomitant]

REACTIONS (7)
  - Migraine [Recovering/Resolving]
  - Pruritus [Recovered/Resolved]
  - Pain [Recovering/Resolving]
  - Ear infection [Unknown]
  - Drug dose omission [Unknown]
  - Sinus congestion [Unknown]
  - Cough [Unknown]
